FAERS Safety Report 8013778-5 (Version None)
Quarter: 2011Q4

REPORT INFORMATION
  Report Type: 
  Country: None (occurrence: None)
  Receive Date: 20111229
  Receipt Date: 20111227
  Transmission Date: 20120403
  Serious: Yes (Hospitalization)
  Sender: FDA-Public Use
  Company Number: US-PFIZER INC-2011266484

PATIENT
  Sex: Female
  Weight: 60.9 kg

DRUGS (6)
  1. XALKORI [Suspect]
     Indication: NON-SMALL CELL LUNG CANCER
     Dosage: 250 MG, 2X/DAY
     Route: 048
     Dates: end: 20111026
  2. WARFARIN [Concomitant]
     Dosage: UNK
  3. PEPCID [Concomitant]
     Dosage: UNK
  4. LOPRESSOR [Concomitant]
     Dosage: UNK
  5. LASIX [Concomitant]
     Dosage: UNK
  6. LIPITOR [Concomitant]
     Dosage: UNK

REACTIONS (1)
  - ATRIAL FIBRILLATION [None]
